FAERS Safety Report 6745004-9 (Version None)
Quarter: 2010Q2

REPORT INFORMATION
  Report Type: 
  Country: None (occurrence: None)
  Receive Date: 20100527
  Receipt Date: 20100518
  Transmission Date: 20101027
  Serious: Yes (Other)
  Sender: FDA-Public Use
  Company Number: US-ROCHE-692545

PATIENT
  Sex: Male
  Weight: 86.2 kg

DRUGS (2)
  1. ACCUTANE [Suspect]
     Indication: ACNE
     Dosage: INTERMITTENTLY
     Route: 065
     Dates: start: 19800101
  2. ACCUTANE [Suspect]
     Dosage: INTERMITTENTLY
     Route: 065
     Dates: start: 19920101, end: 19970101

REACTIONS (10)
  - DEPRESSION [None]
  - GASTROINTESTINAL MOTILITY DISORDER [None]
  - INFLAMMATORY BOWEL DISEASE [None]
  - INSOMNIA [None]
  - MUCOUS STOOLS [None]
  - ORAL HERPES [None]
  - PROCTITIS ULCERATIVE [None]
  - RECTAL HAEMORRHAGE [None]
  - SUICIDAL IDEATION [None]
  - TENDONITIS [None]
